FAERS Safety Report 24800826 (Version 1)
Quarter: 2025Q1

REPORT INFORMATION
  Report Type: Spontaneous
  Country: US (occurrence: US)
  Receive Date: 20250102
  Receipt Date: 20250102
  Transmission Date: 20250408
  Serious: Yes (Other)
  Sender: BAXTER
  Company Number: US-BAXTER-2024BAX030188

PATIENT
  Age: 36 Year
  Sex: Male

DRUGS (6)
  1. FLUCONAZOLE [Suspect]
     Active Substance: FLUCONAZOLE
     Indication: Cytomegalovirus gastritis
     Route: 065
  2. GANCICLOVIR [Suspect]
     Active Substance: GANCICLOVIR
     Indication: Cytomegalovirus gastritis
     Route: 065
  3. TECOVIRIMAT [Concomitant]
     Active Substance: TECOVIRIMAT
     Indication: Monkeypox
     Route: 050
  4. TECOVIRIMAT [Concomitant]
     Active Substance: TECOVIRIMAT
     Route: 050
  5. BIKTARVY [Concomitant]
     Active Substance: BICTEGRAVIR SODIUM\EMTRICITABINE\TENOFOVIR ALAFENAMIDE FUMARATE
     Indication: Monkeypox
     Route: 065
  6. Immunoglobulin [Concomitant]
     Indication: Monkeypox
     Route: 042

REACTIONS (1)
  - Pancytopenia [Unknown]
